FAERS Safety Report 4995501-1 (Version None)
Quarter: 2006Q2

REPORT INFORMATION
  Report Type: 
  Country: None (occurrence: None)
  Receive Date: 20060508
  Receipt Date: 20050621
  Transmission Date: 20061013
  Serious: Yes (Hospitalization, Disabling)
  Sender: FDA-Public Use
  Company Number: US-ROCHE-408674

PATIENT
  Age: 21 Year
  Sex: Male
  Weight: 73.5 kg

DRUGS (1)
  1. ACCUTANE [Suspect]
     Indication: ACNE
     Route: 048
     Dates: start: 20031008, end: 20040415

REACTIONS (29)
  - ACNE [None]
  - ANAEMIA [None]
  - ANAL FISSURE [None]
  - ANHEDONIA [None]
  - ANXIETY [None]
  - BRONCHITIS [None]
  - CERUMEN IMPACTION [None]
  - COLITIS [None]
  - COLITIS ULCERATIVE [None]
  - CONSTIPATION [None]
  - ERECTILE DYSFUNCTION [None]
  - GASTROINTESTINAL DISORDER [None]
  - INFLAMMATORY BOWEL DISEASE [None]
  - INTESTINAL HAEMORRHAGE [None]
  - IRON DEFICIENCY ANAEMIA [None]
  - JOINT SPRAIN [None]
  - LACTOSE INTOLERANCE [None]
  - PAIN [None]
  - PHARYNGITIS [None]
  - PLATELET COUNT INCREASED [None]
  - POLYTRAUMATISM [None]
  - PROCTITIS [None]
  - PRURITUS [None]
  - RECTAL HAEMORRHAGE [None]
  - SCIATICA [None]
  - SCOLIOSIS [None]
  - TONSILLITIS [None]
  - UPPER RESPIRATORY TRACT INFECTION [None]
  - WEIGHT INCREASED [None]
